FAERS Safety Report 21144253 (Version 2)
Quarter: 2025Q4

REPORT INFORMATION
  Report Type: Report from Study
  Country: EU (occurrence: EU)
  Receive Date: 20220728
  Receipt Date: 20251119
  Transmission Date: 20260117
  Serious: Yes (Hospitalization)
  Sender: NOVARTIS
  Company Number: EU-NOVARTISPH-NVSC2022FR167164

PATIENT
  Sex: Female
  Weight: 48.54 kg

DRUGS (5)
  1. PIQRAY [Suspect]
     Active Substance: ALPELISIB
     Indication: Arteriovenous malformation
     Dosage: 125 MG
     Route: 048
     Dates: start: 20220420, end: 20220705
  2. PIQRAY [Suspect]
     Active Substance: ALPELISIB
     Indication: K-ras gene mutation
  3. KETOPROFEN [Suspect]
     Active Substance: KETOPROFEN
     Indication: Analgesic therapy
     Dosage: 200 MG, QD (100 MG X 2 DOSAGE FORM)
     Route: 065
     Dates: start: 20220420, end: 20220630
  4. LYRICA [Concomitant]
     Active Substance: PREGABALIN
     Indication: Product used for unknown indication
     Dosage: 25 MG, QD
     Route: 048
     Dates: start: 20220530
  5. ACETAMINOPHEN\OPIUM [Concomitant]
     Active Substance: ACETAMINOPHEN\OPIUM
     Indication: Product used for unknown indication
     Dosage: UNK
     Route: 065

REACTIONS (5)
  - Skin necrosis [Recovering/Resolving]
  - Skin lesion [Unknown]
  - Condition aggravated [Unknown]
  - Impaired healing [Unknown]
  - Drug ineffective [Unknown]
